FAERS Safety Report 9158406 (Version 2)
Quarter: 2013Q2

REPORT INFORMATION
  Report Type: Spontaneous
  Country: US (occurrence: US)
  Receive Date: 20130312
  Receipt Date: 20130508
  Transmission Date: 20140414
  Serious: No
  Sender: FDA-Public Use
  Company Number: US-PFIZER INC-2013082090

PATIENT
  Age: 56 Year
  Sex: Female
  Weight: 117 kg

DRUGS (7)
  1. LYRICA [Suspect]
     Dosage: 75 MG, 2X/DAY
     Route: 048
     Dates: start: 201209
  2. LYRICA [Suspect]
     Dosage: UNK
     Dates: end: 201303
  3. METFORMIN [Concomitant]
     Indication: DIABETES MELLITUS
     Dosage: UNK
  4. CLONIDINE [Concomitant]
     Indication: HYPERTENSION
     Dosage: 0.2 MG, 2X/DAY
  5. IRON [Concomitant]
     Dosage: UNK
  6. KLOR-CON [Concomitant]
     Dosage: UNK, 1X/DAY
  7. DILTIAZEM [Concomitant]
     Dosage: 360 MG, 1X/DAY

REACTIONS (6)
  - Local swelling [Recovering/Resolving]
  - Joint swelling [Recovering/Resolving]
  - Rash [Recovering/Resolving]
  - Rash pruritic [Recovering/Resolving]
  - Somnolence [Recovered/Resolved]
  - Dry mouth [Not Recovered/Not Resolved]
